FAERS Safety Report 9367414 (Version 1)
Quarter: 2013Q2

REPORT INFORMATION
  Report Type: Spontaneous
  Country: US (occurrence: US)
  Receive Date: 20130625
  Receipt Date: 20130625
  Transmission Date: 20140414
  Serious: Yes (Hospitalization, Other)
  Sender: FDA-Public Use
  Company Number: US-GILEAD-2013-0077839

PATIENT
  Age: 80 Year
  Sex: Female

DRUGS (2)
  1. LETAIRIS [Suspect]
     Indication: PULMONARY HYPERTENSION
     Dosage: 5 MG, QD
     Route: 048
     Dates: start: 20071019
  2. VIAGRA [Concomitant]
     Indication: PULMONARY HYPERTENSION

REACTIONS (2)
  - Chest pain [Recovered/Resolved]
  - Coronary artery occlusion [Unknown]
